FAERS Safety Report 7077967-9 (Version None)
Quarter: 2010Q4

REPORT INFORMATION
  Report Type: 
  Country: None (occurrence: None)
  Receive Date: 20101101
  Receipt Date: 20101026
  Transmission Date: 20110411
  Serious: No
  Sender: FDA-Public Use
  Company Number: US-BAYER-201022660BCC

PATIENT
  Age: 21 Year
  Sex: Male
  Weight: 77 kg

DRUGS (1)
  1. ALEVE (CAPLET) [Suspect]
     Dosage: 10 TO 20 CAPLETS
     Route: 048
     Dates: start: 20101026

REACTIONS (2)
  - DIZZINESS [None]
  - SOMNOLENCE [None]
